FAERS Safety Report 19452573 (Version 2)
Quarter: 2023Q4

REPORT INFORMATION
  Report Type: Spontaneous
  Country: CA (occurrence: None)
  Receive Date: 20210623
  Receipt Date: 20231201
  Transmission Date: 20240110
  Serious: Yes (Other)
  Sender: FDA-Public Use
  Company Number: CA-ROCHE-2856243

PATIENT
  Age: 57 Year
  Sex: Female

DRUGS (3)
  1. OCRELIZUMAB [Suspect]
     Active Substance: OCRELIZUMAB
     Indication: Primary progressive multiple sclerosis
     Route: 042
  2. PROPRANOLOL HYDROCHLORIDE [Suspect]
     Active Substance: PROPRANOLOL HYDROCHLORIDE
     Indication: Product used for unknown indication
     Route: 065
  3. DOCONEXENT\ICOSAPENT [Concomitant]
     Active Substance: DOCONEXENT\ICOSAPENT

REACTIONS (7)
  - Balance disorder [Not Recovered/Not Resolved]
  - Dizziness [Not Recovered/Not Resolved]
  - Fall [Unknown]
  - Muscular weakness [Not Recovered/Not Resolved]
  - Skin laceration [Not Recovered/Not Resolved]
  - Tremor [Not Recovered/Not Resolved]
  - Mobility decreased [Not Recovered/Not Resolved]
